FAERS Safety Report 8992073 (Version 2)
Quarter: 2013Q1

REPORT INFORMATION
  Report Type: Spontaneous
  Country: MX (occurrence: MX)
  Receive Date: 20121231
  Receipt Date: 20130118
  Transmission Date: 20140127
  Serious: Yes (Other)
  Sender: FDA-Public Use
  Company Number: PHHY2012MX113369

PATIENT
  Sex: Female

DRUGS (6)
  1. EXFORGE HCT [Suspect]
     Indication: HYPERTENSION
     Dosage: 1 DF, (160 MG VALS, 5 MG AMLO AND 12.5 MG HCTZ) DAILY
     Route: 048
     Dates: start: 201012
  2. EXFORGE HCT [Suspect]
     Dosage: 1 DF (320 MG VALS, 10 MG AMLO AND 25 MG HCTZ), DAILY
     Route: 048
  3. NEXIUM [Concomitant]
     Indication: GASTRITIS
     Dosage: 40 MG, UNK
  4. RIVOTRIL [Concomitant]
     Indication: DEPRESSION
     Dosage: 2 MG, UNK
  5. COMENTER [Concomitant]
     Indication: DEPRESSION
     Dosage: 1 UKN, DAILY
     Dates: start: 200812
  6. ANAPRIL [Concomitant]
     Indication: DEPRESSION
     Dosage: 3 DF, DAILY
     Dates: start: 200812, end: 201210

REACTIONS (4)
  - Neoplasm [Not Recovered/Not Resolved]
  - Lipoma [Not Recovered/Not Resolved]
  - Arthropathy [Not Recovered/Not Resolved]
  - Blood pressure inadequately controlled [Not Recovered/Not Resolved]
